FAERS Safety Report 20821566 (Version 2)
Quarter: 2022Q2

REPORT INFORMATION
  Report Type: Spontaneous
  Country: PL (occurrence: PL)
  Receive Date: 20220512
  Receipt Date: 20220613
  Transmission Date: 20220721
  Serious: Yes (Hospitalization, Other)
  Sender: FDA-Public Use
  Company Number: US-CELGENE-POL-20210803262

PATIENT
  Age: 66 Year
  Sex: Female

DRUGS (67)
  1. AZACITIDINE [Suspect]
     Active Substance: AZACITIDINE
     Indication: Acute myeloid leukaemia
     Dosage: FREQUENCY TEXT: NOT PROVIDED
     Route: 058
     Dates: start: 20210712
  2. AZACITIDINE [Suspect]
     Active Substance: AZACITIDINE
     Dosage: FREQUENCY TEXT: NOT PROVIDED
     Route: 042
     Dates: start: 20210713, end: 20210713
  3. AZACITIDINE [Suspect]
     Active Substance: AZACITIDINE
     Dosage: FREQUENCY TEXT: NOT PROVIDED
     Route: 042
     Dates: start: 20210714, end: 20210725
  4. AZACITIDINE [Suspect]
     Active Substance: AZACITIDINE
     Dosage: FREQUENCY TEXT: NOT PROVIDED
     Route: 042
     Dates: start: 20210725
  5. VENETOCLAX [Suspect]
     Active Substance: VENETOCLAX
     Indication: Acute myeloid leukaemia
     Dosage: 100 MILLIGRAM; ORAL 200 MILLIGRAM; ORAL 400 MILLIGRAM; ORAL 100 MILLIGRAM; ORAL
     Route: 048
     Dates: start: 20210712, end: 20210712
  6. VENETOCLAX [Suspect]
     Active Substance: VENETOCLAX
     Dosage: FREQUENCY TEXT: NOT PROVIDED?200 MILLIGRAM
     Route: 048
     Dates: start: 20210713, end: 20210713
  7. VENETOCLAX [Suspect]
     Active Substance: VENETOCLAX
     Dosage: FREQUENCY TEXT: NOT PROVIDED?400 MILLIGRAM
     Route: 048
     Dates: start: 20210714, end: 20210725
  8. VENETOCLAX [Suspect]
     Active Substance: VENETOCLAX
     Dosage: FREQUENCY TEXT: NOT PROVIDED?100 MILLIGRAM
     Route: 048
     Dates: start: 20210726, end: 20210910
  9. VENETOCLAX [Suspect]
     Active Substance: VENETOCLAX
     Route: 048
     Dates: start: 20210911
  10. ALLOPURINOL [Concomitant]
     Active Substance: ALLOPURINOL
  11. ALLOPURINOL [Concomitant]
     Active Substance: ALLOPURINOL
     Indication: Product used for unknown indication
     Dosage: FREQUENCY TEXT: NOT PROVIDED
     Route: 065
     Dates: start: 20210712, end: 20210716
  12. MEROPENEM [Concomitant]
     Active Substance: MEROPENEM
  13. MEROPENEM [Concomitant]
     Active Substance: MEROPENEM
     Indication: Product used for unknown indication
     Dosage: FREQUENCY TEXT: NOT PROVIDED
     Route: 065
     Dates: start: 20210714, end: 20210720
  14. LINEZOLID [Concomitant]
     Active Substance: LINEZOLID
  15. LINEZOLID [Concomitant]
     Active Substance: LINEZOLID
     Indication: Infection
     Dosage: FREQUENCY TEXT: NOT PROVIDED
     Route: 065
     Dates: start: 20210714, end: 20210721
  16. LEVOFLOXACIN [Concomitant]
     Active Substance: LEVOFLOXACIN
  17. LEVOFLOXACIN [Concomitant]
     Active Substance: LEVOFLOXACIN
     Indication: Infection prophylaxis
     Dosage: FREQUENCY TEXT: NOT PROVIDED
     Route: 065
     Dates: start: 20210713, end: 20210803
  18. ONDANSETRON [Concomitant]
     Active Substance: ONDANSETRON
     Dosage: FREQUENCY TEXT: NOT PROVIDED
     Route: 065
     Dates: start: 20210712, end: 20210716
  19. ONDANSETRON [Concomitant]
     Active Substance: ONDANSETRON
     Indication: Prophylaxis of nausea and vomiting
  20. TRANEXAMIC ACID [Concomitant]
     Active Substance: TRANEXAMIC ACID
  21. TRANEXAMIC ACID [Concomitant]
     Active Substance: TRANEXAMIC ACID
     Indication: Thrombocytopenia
  22. TRANEXAMIC ACID [Concomitant]
     Active Substance: TRANEXAMIC ACID
  23. TRANEXAMIC ACID [Concomitant]
     Active Substance: TRANEXAMIC ACID
  24. TRANEXAMIC ACID [Concomitant]
     Active Substance: TRANEXAMIC ACID
  25. TRANEXAMIC ACID [Concomitant]
     Active Substance: TRANEXAMIC ACID
  26. TRANEXAMIC ACID [Concomitant]
     Active Substance: TRANEXAMIC ACID
  27. TRANEXAMIC ACID [Concomitant]
     Active Substance: TRANEXAMIC ACID
  28. TRANEXAMIC ACID [Concomitant]
     Active Substance: TRANEXAMIC ACID
  29. TRANEXAMIC ACID [Concomitant]
     Active Substance: TRANEXAMIC ACID
  30. TRANEXAMIC ACID [Concomitant]
     Active Substance: TRANEXAMIC ACID
  31. TRANEXAMIC ACID [Concomitant]
     Active Substance: TRANEXAMIC ACID
  32. TRANEXAMIC ACID [Concomitant]
     Active Substance: TRANEXAMIC ACID
  33. TRANEXAMIC ACID [Concomitant]
     Active Substance: TRANEXAMIC ACID
  34. TRANEXAMIC ACID [Concomitant]
     Active Substance: TRANEXAMIC ACID
  35. TRANEXAMIC ACID [Concomitant]
     Active Substance: TRANEXAMIC ACID
  36. TRANEXAMIC ACID [Concomitant]
     Active Substance: TRANEXAMIC ACID
  37. TRANEXAMIC ACID [Concomitant]
     Active Substance: TRANEXAMIC ACID
  38. TRANEXAMIC ACID [Concomitant]
     Active Substance: TRANEXAMIC ACID
  39. TRANEXAMIC ACID [Concomitant]
     Active Substance: TRANEXAMIC ACID
  40. TRANEXAMIC ACID [Concomitant]
     Active Substance: TRANEXAMIC ACID
     Dosage: FREQUENCY TEXT: NOT PROVIDED
     Route: 065
     Dates: start: 20210728, end: 20210810
  41. CASPOFUNGIN [Concomitant]
     Active Substance: CASPOFUNGIN
     Route: 065
     Dates: start: 20210707, end: 20210720
  42. CASPOFUNGIN [Concomitant]
     Active Substance: CASPOFUNGIN
     Indication: Product used for unknown indication
  43. BETAHISTINE [Concomitant]
     Active Substance: BETAHISTINE
  44. BETAHISTINE [Concomitant]
     Active Substance: BETAHISTINE
     Indication: Vertigo
     Dosage: FREQUENCY TEXT: NOT PROVIDED
     Route: 065
  45. ZOLPIDEM [Concomitant]
     Active Substance: ZOLPIDEM TARTRATE
     Dosage: FREQUENCY TEXT: NOT PROVIDED
     Route: 065
     Dates: end: 20210802
  46. ZOLPIDEM [Concomitant]
     Active Substance: ZOLPIDEM TARTRATE
     Indication: Insomnia
  47. INSULIN HUMAN [Concomitant]
     Active Substance: INSULIN HUMAN
     Indication: Diabetes mellitus
     Route: 065
     Dates: start: 20210802
  48. INSULIN HUMAN [Concomitant]
     Active Substance: INSULIN HUMAN
     Dosage: FREQUENCY TEXT: NOT PROVIDED
     Route: 065
     Dates: start: 20210721, end: 20210721
  49. NADROPARIN CALCIUM [Concomitant]
     Active Substance: NADROPARIN CALCIUM
     Indication: Thrombosis prophylaxis
     Dosage: FREQUENCY TEXT: NOT PROVIDED
     Route: 065
     Dates: start: 20210702, end: 20210721
  50. RINGERS SOLUTION [Concomitant]
     Active Substance: CALCIUM CHLORIDE\POTASSIUM CHLORIDE\SODIUM CHLORIDE
     Indication: Product used for unknown indication
     Dosage: FREQUENCY TEXT: NOT PROVIDED
     Route: 065
     Dates: start: 20210712, end: 20210720
  51. CEFEPIME HYDROCHLORIDE [Concomitant]
     Active Substance: CEFEPIME HYDROCHLORIDE
     Indication: Product used for unknown indication
     Dosage: FREQUENCY TEXT: NOT PROVIDED
     Route: 065
     Dates: start: 20210713, end: 20210714
  52. PANTOPRAZOLE [Concomitant]
     Active Substance: PANTOPRAZOLE
     Indication: Dyspepsia
     Dosage: FREQUENCY TEXT: NOT PROVIDED
     Route: 065
     Dates: start: 20210717, end: 20210721
  53. SODIUM BICARBONATE [Concomitant]
     Active Substance: SODIUM BICARBONATE
     Indication: Product used for unknown indication
     Dosage: FREQUENCY TEXT: NOT PROVIDED
     Route: 065
     Dates: start: 20210714, end: 20210721
  54. POTASSIUM BICARBONATE\POTASSIUM CITRATE [Concomitant]
     Active Substance: POTASSIUM BICARBONATE\POTASSIUM CITRATE
     Indication: Prophylaxis
     Dosage: FREQUENCY TEXT: NOT PROVIDED
     Route: 065
     Dates: start: 20210715, end: 20210803
  55. KCL [Concomitant]
     Active Substance: POTASSIUM CHLORIDE
     Indication: Product used for unknown indication
     Dosage: FREQUENCY TEXT: NOT PROVIDED
     Route: 065
     Dates: start: 20210719, end: 20210720
  56. NADROPARIN CALCIUM [Concomitant]
     Active Substance: NADROPARIN CALCIUM
     Indication: Prophylaxis
     Dosage: FREQUENCY TEXT: NOT PROVIDED
     Route: 065
     Dates: start: 20210717, end: 20210721
  57. VORICONAZOLE [Concomitant]
     Active Substance: VORICONAZOLE
     Indication: Antifungal prophylaxis
     Dosage: FREQUENCY TEXT: NOT PROVIDED
     Route: 065
     Dates: start: 20210721, end: 20210910
  58. VORICONAZOLE [Concomitant]
     Active Substance: VORICONAZOLE
     Indication: Febrile neutropenia
  59. ATORVASTATIN CALCIUM [Concomitant]
     Active Substance: ATORVASTATIN CALCIUM
     Indication: Hypercholesterolaemia
     Dosage: FREQUENCY TEXT: NOT PROVIDED
     Route: 065
  60. ACYCLOVIR [Concomitant]
     Active Substance: ACYCLOVIR
     Indication: Product used for unknown indication
     Dosage: FREQUENCY TEXT: NOT PROVIDED
     Route: 065
     Dates: start: 20210630, end: 20211028
  61. TRAZODONE HYDROCHLORIDE [Concomitant]
     Active Substance: TRAZODONE HYDROCHLORIDE
     Indication: Insomnia
     Dosage: FREQUENCY TEXT: NOT PROVIDED
     Route: 065
     Dates: start: 20210802
  62. MEGESTROL ACETATE [Concomitant]
     Active Substance: MEGESTROL ACETATE
     Indication: Decreased appetite
     Dosage: FREQUENCY TEXT: NOT PROVIDED
     Route: 065
     Dates: start: 20210802, end: 20210802
  63. ACETAMINOPHEN [Concomitant]
     Active Substance: ACETAMINOPHEN
     Indication: Product used for unknown indication
     Dosage: FREQUENCY TEXT: NOT PROVIDED
     Route: 065
     Dates: start: 20210714, end: 20210714
  64. FUROSEMIDE [Concomitant]
     Active Substance: FUROSEMIDE
     Indication: Product used for unknown indication
     Dosage: FREQUENCY TEXT: NOT PROVIDED
     Route: 065
     Dates: start: 20210713, end: 20210716
  65. LOPERAMIDE [Concomitant]
     Active Substance: LOPERAMIDE
     Indication: Product used for unknown indication
     Route: 065
     Dates: start: 20210717, end: 20210717
  66. NYSTATIN [Concomitant]
     Active Substance: NYSTATIN
     Indication: Product used for unknown indication
     Route: 065
     Dates: start: 20210417, end: 20210825
  67. BETADINE [Concomitant]
     Active Substance: POVIDONE-IODINE
     Indication: Product used for unknown indication
     Route: 065
     Dates: start: 20210425, end: 20210914

REACTIONS (2)
  - Febrile neutropenia [Recovered/Resolved]
  - Soft tissue inflammation [Recovered/Resolved]

NARRATIVE: CASE EVENT DATE: 20210803
